FAERS Safety Report 4286094-5 (Version None)
Quarter: 2004Q1

REPORT INFORMATION
  Report Type: 
  Country: None (occurrence: None)
  Receive Date: 20040120
  Receipt Date: 20030624
  Transmission Date: 20041129
  Serious: Yes (Hospitalization)
  Sender: FDA-Public Use
  Company Number: ENZ-ABE-120

PATIENT
  Sex: Male

DRUGS (2)
  1. ABELCET [Suspect]
     Indication: CULTURE URINE POSITIVE
     Dosage: 5 MG/KG DAILY IV
     Route: 042
  2. CASPOFUNGIN [Concomitant]

REACTIONS (1)
  - HYPOKALAEMIA [None]
